FAERS Safety Report 19698653 (Version 1)
Quarter: 2021Q3

REPORT INFORMATION
  Report Type: Spontaneous
  Country: GB (occurrence: GB)
  Receive Date: 20210813
  Receipt Date: 20210813
  Transmission Date: 20211014
  Serious: No
  Sender: FDA-Public Use
  Company Number: GB-ALKEM LABORATORIES LIMITED-GB-ALKEM-2021-03874

PATIENT
  Age: 75 Year
  Sex: Female
  Weight: 64 kg

DRUGS (15)
  1. PREGABALIN. [Suspect]
     Active Substance: PREGABALIN
     Indication: ILL-DEFINED DISORDER
     Dosage: UNK (TAKE ONE TWICE A DAY )
     Route: 065
     Dates: start: 20210308
  2. COLECALCIFEROL [Concomitant]
     Active Substance: CHOLECALCIFEROL
     Indication: ILL-DEFINED DISORDER
     Dosage: UNK (1 EVERY DAY FOR THE BONES)
     Route: 065
     Dates: start: 20201203
  3. OMEPRAZOLE. [Concomitant]
     Active Substance: OMEPRAZOLE
     Indication: ILL-DEFINED DISORDER
     Dosage: UNK (TAKE ONE DAILY TO REDUCE EXCESS STOMACH ACID, A...)
     Route: 065
     Dates: start: 20210127, end: 20210224
  4. PREGABALIN. [Suspect]
     Active Substance: PREGABALIN
     Dosage: UNK
     Route: 065
     Dates: start: 20210325
  5. AMLODIPINE [Concomitant]
     Active Substance: AMLODIPINE BESYLATE
     Indication: ILL-DEFINED DISORDER
     Dosage: UNK (TAKE ONE DAILY)
     Route: 065
     Dates: start: 20201203
  6. PERINDOPRIL ERBUMINE. [Concomitant]
     Active Substance: PERINDOPRIL ERBUMINE
     Indication: ILL-DEFINED DISORDER
     Dosage: UNK (TAKE ONE EVERY DAY FOR THE HEART/BLOOD PRESSURE)
     Route: 065
     Dates: start: 20201203
  7. FERROUS GLUCONATE [Concomitant]
     Active Substance: FERROUS GLUCONATE
     Indication: ILL-DEFINED DISORDER
     Dosage: UNK (1 OR 2 EVERY DAY FOR LOW IRON LEVELS)
     Route: 065
     Dates: start: 20201029
  8. LEVOTHYROXINE. [Concomitant]
     Active Substance: LEVOTHYROXINE
     Indication: ILL-DEFINED DISORDER
     Dosage: TAKE ONE EACH MORNING AS TOTAL  DAILY  DOSE  IS...
     Route: 065
     Dates: start: 20201203
  9. HYDROXOCOBALAMIN [Concomitant]
     Active Substance: HYDROXOCOBALAMIN
     Indication: ILL-DEFINED DISORDER
     Dosage: USE AS DIRECTED SURGERY TO CLAIM
     Route: 065
     Dates: start: 20210120
  10. PARACETAMOL [Concomitant]
     Active Substance: ACETAMINOPHEN
     Indication: ILL-DEFINED DISORDER
     Dosage: UNK (TWO TO BE TAKEN  FOUR TIMES A DAY  FOR PAIN)
     Route: 065
     Dates: start: 20191009
  11. BECLOMETASONE [Concomitant]
     Active Substance: BECLOMETHASONE DIPROPIONATE
     Indication: ILL-DEFINED DISORDER
     Dosage: UNK (SPRAY TWICE INTO EACH NOSTRIL TWICE A DAY AT FI...)
     Route: 065
     Dates: start: 20210127, end: 20210224
  12. BISOPROLOL [Concomitant]
     Active Substance: BISOPROLOL
     Indication: ILL-DEFINED DISORDER
     Dosage: UNK (TAKE ONE EACH DAY FOR THE HEART/BLOOD PRESSURE)
     Route: 065
     Dates: start: 20201203
  13. BENZYDAMINE HYDROCHLORIDE [Concomitant]
     Active Substance: BENZYDAMINE HYDROCHLORIDE
     Indication: ILL-DEFINED DISORDER
     Dosage: UNK (USE EVERY 3 HRS FOR SORE THROAT)
     Route: 065
     Dates: start: 20210301, end: 20210306
  14. RIVAROXABAN [Concomitant]
     Active Substance: RIVAROXABAN
     Indication: ILL-DEFINED DISORDER
     Dosage: UNK (TAKE ONE DAILY WITH FOOD FOR PREVENTION OF STRO...)
     Route: 065
     Dates: start: 20201203
  15. SNO TEARS [Concomitant]
     Indication: ILL-DEFINED DISORDER
     Dosage: USE AS OFTEN AS NEEDED FOR DRY EYES ? DISCARD 2...
     Route: 065
     Dates: start: 20200123

REACTIONS (1)
  - Somnolence [Recovered/Resolved]

NARRATIVE: CASE EVENT DATE: 20210325
